FAERS Safety Report 21533540 (Version 1)
Quarter: 2022Q4

REPORT INFORMATION
  Report Type: Spontaneous
  Country: CN (occurrence: CN)
  Receive Date: 20221101
  Receipt Date: 20221101
  Transmission Date: 20230112
  Serious: Yes (Hospitalization, Other)
  Sender: FDA-Public Use
  Company Number: CN-MACLEODS PHARMACEUTICALS US LTD-MAC2022038068

PATIENT

DRUGS (9)
  1. METFORMIN [Suspect]
     Active Substance: METFORMIN HYDROCHLORIDE
     Indication: Diabetes mellitus
     Dosage: 0.5 GRAM, BID
     Route: 065
  2. METFORMIN [Suspect]
     Active Substance: METFORMIN HYDROCHLORIDE
     Dosage: 1 GRAM, QD
     Route: 065
     Dates: start: 20200901, end: 20201013
  3. ATORVASTATIN [Concomitant]
     Active Substance: ATORVASTATIN
     Indication: Coronary artery disease
     Dosage: 10 MILLIGRAM, QD (IN THE EVENING)
     Route: 065
  4. REPAGLINIDE [Concomitant]
     Active Substance: REPAGLINIDE
     Indication: Diabetes mellitus
     Dosage: 1 MILLIGRAM, BID
     Route: 065
  5. HERBALS [Concomitant]
     Active Substance: HERBALS
     Indication: Coronary artery disease
     Dosage: 10 DOSAGE FORM, TID; 10 CAPSULES; DRIPPING PILLS
     Route: 065
  6. ACARBOSE [Concomitant]
     Active Substance: ACARBOSE
     Indication: Diabetes mellitus
     Dosage: 50 MILLIGRAM, TID
     Route: 065
  7. ISOSORBIDE [Concomitant]
     Active Substance: ISOSORBIDE
     Indication: Coronary artery disease
     Dosage: 10 MILLIGRAM, QD; IN THE AFTERNOON
     Route: 065
  8. ISOSORBIDE [Concomitant]
     Active Substance: ISOSORBIDE
     Dosage: 5 MILLIGRAM, QD; IN THE EVENING
     Route: 065
  9. ISOSORBIDE [Concomitant]
     Active Substance: ISOSORBIDE
     Dosage: 5 MILLIGRAM, QD; IN THE MORNING
     Route: 065

REACTIONS (2)
  - Weight decreased [Unknown]
  - Intentional product use issue [Recovered/Resolved]

NARRATIVE: CASE EVENT DATE: 20200901
